FAERS Safety Report 11844936 (Version 1)
Quarter: 2015Q4

REPORT INFORMATION
  Report Type: Spontaneous
  Country: FR (occurrence: FR)
  Receive Date: 20151217
  Receipt Date: 20151217
  Transmission Date: 20160305
  Serious: Yes (Hospitalization)
  Sender: FDA-Public Use
  Company Number: FR-SA-2015SA205606

PATIENT
  Age: 40 Year
  Sex: Male

DRUGS (22)
  1. BACTRIM [Suspect]
     Active Substance: SULFAMETHOXAZOLE\TRIMETHOPRIM
     Indication: TUBERCULOSIS
     Route: 048
     Dates: start: 20120824, end: 20121212
  2. PARACETAMOL [Concomitant]
     Active Substance: ACETAMINOPHEN
     Dates: start: 20121119
  3. KIVEXA [Suspect]
     Active Substance: ABACAVIR SULFATE\LAMIVUDINE
     Indication: HIV TEST POSITIVE
     Route: 048
     Dates: start: 20121122, end: 20121203
  4. ATRIPLA [Suspect]
     Active Substance: EFAVIRENZ\EMTRICITABINE\TENOFOVIR DISOPROXIL FUMARATE
     Indication: HIV TEST POSITIVE
     Route: 048
     Dates: start: 20120905, end: 20121023
  5. TRUVADA [Suspect]
     Active Substance: EMTRICITABINE\TENOFOVIR DISOPROXIL FUMARATE
     Indication: HIV TEST POSITIVE
     Route: 048
     Dates: start: 20121023, end: 20121122
  6. TRUVADA [Suspect]
     Active Substance: EMTRICITABINE\TENOFOVIR DISOPROXIL FUMARATE
     Indication: HIV TEST POSITIVE
     Route: 048
     Dates: start: 20121203, end: 20121212
  7. HYDROXYZINE [Concomitant]
     Active Substance: HYDROXYZINE\HYDROXYZINE HYDROCHLORIDE
     Dates: start: 20121119
  8. RIFATER [Concomitant]
     Active Substance: ISONIAZID\PYRAZINAMIDE\RIFAMPIN
     Dates: start: 20120824, end: 20121023
  9. ESOMEPRAZOLE [Concomitant]
     Active Substance: ESOMEPRAZOLE
     Indication: GASTRITIS
     Dates: start: 20120907
  10. PHLOROGLUCINOL [Concomitant]
     Active Substance: PHLOROGLUCINOL
     Dates: start: 20121119
  11. NEFOPAM [Concomitant]
     Active Substance: NEFOPAM
     Dates: start: 20121119
  12. TRAMADOL. [Concomitant]
     Active Substance: TRAMADOL
     Dates: start: 20121119
  13. RIFINAH [Suspect]
     Active Substance: ISONIAZID\RIFAMPIN
     Route: 065
     Dates: start: 20121023
  14. ISENTRESS [Suspect]
     Active Substance: RALTEGRAVIR POTASSIUM
     Indication: HIV TEST POSITIVE
     Route: 048
     Dates: start: 20121023, end: 20121212
  15. FLUCONAZOLE. [Concomitant]
     Active Substance: FLUCONAZOLE
     Indication: OESOPHAGEAL CANDIDIASIS
     Dates: start: 20120905
  16. FONDAPARINUX [Concomitant]
     Active Substance: FONDAPARINUX
     Dates: start: 20121122
  17. ESOMEPRAZOLE [Concomitant]
     Active Substance: ESOMEPRAZOLE
     Indication: GASTRITIS
     Dates: start: 20121219
  18. INEXIUM [Concomitant]
     Active Substance: ESOMEPRAZOLE
  19. TRIFLUCAN [Concomitant]
     Active Substance: FLUCONAZOLE
  20. ETHAMBUTOL [Concomitant]
     Active Substance: ETHAMBUTOL HYDROCHLORIDE
     Dates: start: 20120824
  21. FLUCONAZOLE. [Concomitant]
     Active Substance: FLUCONAZOLE
     Indication: OESOPHAGEAL CANDIDIASIS
     Dates: start: 20121219
  22. VALACICLOVIR [Concomitant]
     Active Substance: VALACYCLOVIR HYDROCHLORIDE
     Dates: start: 20121128

REACTIONS (1)
  - Drug reaction with eosinophilia and systemic symptoms [Recovering/Resolving]

NARRATIVE: CASE EVENT DATE: 2012
